FAERS Safety Report 7230292-5 (Version None)
Quarter: 2011Q1

REPORT INFORMATION
  Report Type: 
  Country: None (occurrence: None)
  Receive Date: 20110118
  Receipt Date: 20110112
  Transmission Date: 20110831
  Serious: No
  Sender: FDA-Public Use
  Company Number: US-PFIZER INC-2011008890

PATIENT
  Sex: Female

DRUGS (1)
  1. PREMARIN [Suspect]
     Dosage: LOW DOSE FOR ABOUT TWO WEEKS
     Dates: start: 20101201

REACTIONS (6)
  - DIZZINESS [None]
  - VULVOVAGINAL BURNING SENSATION [None]
  - SWELLING [None]
  - BREAST SWELLING [None]
  - VULVOVAGINAL PRURITUS [None]
  - BLOOD PRESSURE INCREASED [None]
